FAERS Safety Report 4878193-1 (Version None)
Quarter: 2005Q4

REPORT INFORMATION
  Report Type: 
  Country: None (occurrence: None)
  Receive Date: 20051209
  Receipt Date: 20050909
  Transmission Date: 20060501
  Serious: Yes (Other)
  Sender: FDA-Public Use
  Company Number: USA-2004-0014918

PATIENT
  Age: 40 Year
  Sex: Male
  Weight: 86.2 kg

DRUGS (7)
  1. OXYCONTIN [Suspect]
     Indication: PAIN
     Dosage: 40 MG, BID
  2. NORCO [Concomitant]
  3. METHADONE [Concomitant]
  4. MOTRIN [Concomitant]
  5. FLEXERIL [Concomitant]
  6. ROXICODONE [Concomitant]
  7. ACTIQ [Concomitant]

REACTIONS (50)
  - ACTIVITIES OF DAILY LIVING IMPAIRED [None]
  - ANXIETY [None]
  - ARTHRALGIA [None]
  - ASTHENIA [None]
  - BRONCHITIS [None]
  - BRUXISM [None]
  - COUGH [None]
  - DELUSIONAL DISORDER, UNSPECIFIED TYPE [None]
  - DEPRESSION [None]
  - DIPLOPIA [None]
  - DRUG DEPENDENCE [None]
  - DRUG WITHDRAWAL SYNDROME [None]
  - DRY SKIN [None]
  - DYSGEUSIA [None]
  - DYSPEPSIA [None]
  - DYSPNOEA [None]
  - DYSURIA [None]
  - FACET JOINT SYNDROME [None]
  - FATIGUE [None]
  - FOOD CRAVING [None]
  - HEADACHE [None]
  - HYPOAESTHESIA [None]
  - INADEQUATE ANALGESIA [None]
  - JOINT STIFFNESS [None]
  - LACRIMATION INCREASED [None]
  - LIMB DISCOMFORT [None]
  - LUMBAR RADICULOPATHY [None]
  - MOOD ALTERED [None]
  - MUSCLE SPASMS [None]
  - MUSCLE TWITCHING [None]
  - MUSCULAR WEAKNESS [None]
  - MYALGIA [None]
  - NIGHT SWEATS [None]
  - OBSESSIVE-COMPULSIVE DISORDER [None]
  - OSTEOARTHRITIS [None]
  - PAIN [None]
  - PAIN IN EXTREMITY [None]
  - PALPITATIONS [None]
  - PARANOIA [None]
  - RADICULITIS [None]
  - SINUSITIS [None]
  - SLEEP APNOEA SYNDROME [None]
  - SLEEP DISORDER [None]
  - SNORING [None]
  - SOMNOLENCE [None]
  - SPONDYLITIS [None]
  - TENDERNESS [None]
  - THIRST [None]
  - VISION BLURRED [None]
  - WHEEZING [None]
